FAERS Safety Report 5525767-0 (Version None)
Quarter: 2007Q4

REPORT INFORMATION
  Report Type: 
  Country: None (occurrence: None)
  Receive Date: 20071126
  Receipt Date: 20071119
  Transmission Date: 20080405
  Serious: Yes (Life-Threatening, Disabling)
  Sender: FDA-Public Use
  Company Number: JP-ASTRAZENECA-2003AP02912

PATIENT
  Age: 1196 Day
  Sex: Female
  Weight: 10.5 kg

DRUGS (12)
  1. OMEPRAL TABLETS [Suspect]
     Indication: REFLUX OESOPHAGITIS
     Route: 048
     Dates: start: 20030806, end: 20030817
  2. DEPAKENE [Concomitant]
     Indication: EPILEPSY
     Route: 048
     Dates: start: 20011031
  3. MUCODYNE [Concomitant]
     Route: 048
     Dates: start: 20011031, end: 20030817
  4. HOKUNALIN [Concomitant]
     Route: 065
     Dates: start: 20011031
  5. MYSTAN [Concomitant]
     Route: 048
     Dates: start: 20011130
  6. EXCEGRAN [Concomitant]
     Route: 048
     Dates: start: 20020326
  7. MEPTIN [Concomitant]
     Route: 055
     Dates: start: 20020428
  8. BISOLVON [Concomitant]
     Route: 055
     Dates: start: 20020428
  9. ALFAROL [Concomitant]
     Route: 048
     Dates: start: 20020901, end: 20030817
  10. KAYTWO [Concomitant]
     Route: 048
     Dates: start: 20020901, end: 20030817
  11. MUCOSOLVAN [Concomitant]
     Route: 048
     Dates: start: 20020907, end: 20030817
  12. PHENOBARBITAL TAB [Concomitant]
     Route: 048
     Dates: start: 20030319

REACTIONS (1)
  - RENAL FAILURE ACUTE [None]
